FAERS Safety Report 5479893-5 (Version None)
Quarter: 2007Q4

REPORT INFORMATION
  Report Type: 
  Country: None (occurrence: None)
  Receive Date: 20071008
  Receipt Date: 20071002
  Transmission Date: 20080405
  Serious: Yes (Other)
  Sender: FDA-Public Use
  Company Number: DE-BOEHRINGER INGELHEIM PHARMACEUTICALS, INC.-2007-DE-05206DE

PATIENT
  Sex: Female
  Weight: 72 kg

DRUGS (4)
  1. CATAPRESAN [Suspect]
     Indication: HYPERTENSION
     Route: 048
     Dates: start: 20030201
  2. ENALAPRIL MALEATE [Concomitant]
  3. FUSID [Concomitant]
  4. CARVEDILOL [Concomitant]

REACTIONS (3)
  - DRUG DEPENDENCE [None]
  - FATIGUE [None]
  - HYPERTENSIVE CRISIS [None]
